FAERS Safety Report 4662008-0 (Version None)
Quarter: 2005Q2

REPORT INFORMATION
  Report Type: 
  Country: None (occurrence: None)
  Receive Date: 20050516
  Receipt Date: 20050505
  Transmission Date: 20051028
  Serious: Yes (Congenital Anomaly)
  Sender: FDA-Public Use
  Company Number: US-SOLVAY-00205001480

PATIENT
  Sex: Male

DRUGS (1)
  1. PROMETRIUM [Suspect]
     Indication: COMPLICATION OF PREGNANCY
     Dosage: DAILY DOSE:  UNKNOWN
     Route: 064

REACTIONS (1)
  - HYPOSPADIAS [None]
